FAERS Safety Report 4690156-8 (Version None)
Quarter: 2005Q2

REPORT INFORMATION
  Report Type: 
  Country: None (occurrence: None)
  Receive Date: 20050613
  Receipt Date: 20050603
  Transmission Date: 20051028
  Serious: Yes (Hospitalization)
  Sender: FDA-Public Use
  Company Number: 2005JP001068

PATIENT
  Age: 10 Year
  Sex: Male

DRUGS (6)
  1. PROGRAF [Suspect]
     Indication: RENAL TRANSPLANT
     Dosage: SEE IMAGE
     Route: 048
     Dates: start: 20041117, end: 20050104
  2. PROGRAF [Suspect]
     Indication: RENAL TRANSPLANT
     Dosage: SEE IMAGE
     Route: 048
     Dates: start: 20040420
  3. PROGRAF [Suspect]
     Indication: RENAL TRANSPLANT
     Dosage: SEE IMAGE
     Route: 048
     Dates: start: 20050105
  4. METHYLPREDNISOLONE [Concomitant]
  5. MYCOPHENOLATE MOFETIL (MYCOPEHNOLATE MOFETIL) [Concomitant]
  6. LISINOPRIL [Concomitant]

REACTIONS (1)
  - GLOMERULONEPHRITIS PROLIFERATIVE [None]
